FAERS Safety Report 6535672-9 (Version None)
Quarter: 2010Q1

REPORT INFORMATION
  Report Type: 
  Country: None (occurrence: None)
  Receive Date: 20100113
  Receipt Date: 20100113
  Transmission Date: 20100710
  Serious: Yes (Hospitalization)
  Sender: FDA-Public Use
  Company Number: US-ROXANE LABORATORIES, INC.-2009-DE-06703GD

PATIENT
  Age: 60 Year
  Sex: Male

DRUGS (5)
  1. NAPROXEN [Suspect]
     Dosage: 1 G
  2. LISINOPRIL [Suspect]
     Dosage: 40 MG
  3. RANITIDINE [Concomitant]
     Dosage: 300 MG
  4. AMLODIPINE [Concomitant]
     Dosage: 20 MG
  5. CLOPIDOGREL [Concomitant]
     Dosage: 75 MG

REACTIONS (7)
  - DIARRHOEA [None]
  - DYSPNOEA [None]
  - HYPERKALAEMIA [None]
  - NAUSEA [None]
  - PARALYSIS [None]
  - RENAL FAILURE CHRONIC [None]
  - VOMITING [None]
